FAERS Safety Report 7736075-1 (Version None)
Quarter: 2011Q3

REPORT INFORMATION
  Report Type: 
  Country: None (occurrence: None)
  Receive Date: 20110902
  Receipt Date: 20110824
  Transmission Date: 20111222
  Serious: Yes (Life-Threatening)
  Sender: FDA-Public Use
  Company Number: 1025108

PATIENT
  Sex: Female

DRUGS (3)
  1. GENTAMICIN SULFATE [Suspect]
     Indication: PRODUCT USED FOR UNKNOWN INDICATION
  2. (TEICOPLANIN) [Suspect]
     Indication: PRODUCT USED FOR UNKNOWN INDICATION
  3. (ANESTHETICS) [Concomitant]

REACTIONS (1)
  - ANAPHYLACTIC REACTION [None]
